FAERS Safety Report 17004508 (Version 1)
Quarter: 2019Q4

REPORT INFORMATION
  Report Type: Spontaneous
  Country: MX (occurrence: MX)
  Receive Date: 20191107
  Receipt Date: 20191107
  Transmission Date: 20200122
  Serious: Yes (Life-Threatening, Other)
  Sender: FDA-Public Use
  Company Number: MX-PFIZER INC-2019477418

PATIENT
  Age: 58 Year
  Sex: Female

DRUGS (7)
  1. FENTANYL. [Concomitant]
     Active Substance: FENTANYL
     Indication: ANAESTHESIA
     Dosage: UNK (3 U/KG)
     Route: 042
     Dates: start: 2018
  2. PROPOFOL. [Suspect]
     Active Substance: PROPOFOL
     Dosage: 0.5 MG/KG, UNK INFUSION AT 0.5 MG/KG/H)
     Route: 042
     Dates: start: 2018, end: 2018
  3. METHYLPREDNISOLONE SODIUM SUCCINATE. [Suspect]
     Active Substance: METHYLPREDNISOLONE SODIUM SUCCINATE
     Indication: IMMUNOSUPPRESSION
     Dosage: 1000 MG, UNK
     Route: 042
     Dates: start: 2018
  4. BASILIXIMAB [Suspect]
     Active Substance: BASILIXIMAB
     Indication: IMMUNOSUPPRESSION
     Dosage: 20 MG, UNK
     Route: 042
     Dates: start: 2018
  5. PROPOFOL. [Suspect]
     Active Substance: PROPOFOL
     Dosage: UNK (100-200 ?/KG/MIN) (INFUSION OF PROPOFOL)
     Route: 042
     Dates: start: 2018, end: 2018
  6. PROPOFOL. [Suspect]
     Active Substance: PROPOFOL
     Indication: ANAESTHESIA
     Dosage: 1.5 MG/KG, UNK
     Route: 042
     Dates: start: 2018, end: 2018
  7. CISATRACURIUM. [Concomitant]
     Active Substance: CISATRACURIUM
     Indication: ANAESTHESIA
     Dosage: UNK (100 U/KG)
     Route: 042
     Dates: start: 2018

REACTIONS (1)
  - Propofol infusion syndrome [Recovered/Resolved]

NARRATIVE: CASE EVENT DATE: 2018
